FAERS Safety Report 8854053 (Version 1)
Quarter: 2012Q4

REPORT INFORMATION
  Report Type: Spontaneous
  Country: US (occurrence: None)
  Receive Date: 20121019
  Receipt Date: 20121019
  Transmission Date: 20130627
  Serious: No
  Sender: FDA-Public Use
  Company Number: None

PATIENT
  Sex: Female
  Weight: 68.04 kg

DRUGS (2)
  1. OMEPRAZOLE [Suspect]
     Indication: INDIGESTION
     Dates: start: 20120707, end: 20120822
  2. OMEPRAZOLE [Suspect]
     Indication: INDIGESTION
     Dates: start: 20120822, end: 20120912

REACTIONS (3)
  - Pruritus [None]
  - Blister [None]
  - Skin disorder [None]
